FAERS Safety Report 14022475 (Version 7)
Quarter: 2018Q1

REPORT INFORMATION
  Report Type: Spontaneous
  Country: IT (occurrence: IT)
  Receive Date: 20170929
  Receipt Date: 20180327
  Transmission Date: 20180508
  Serious: Yes (Hospitalization, Other)
  Sender: FDA-Public Use
  Company Number: IT-AUROBINDO-AUR-APL-2017-41034

PATIENT
  Age: 16 Year
  Sex: Female

DRUGS (16)
  1. LORMETAZEPAM [Suspect]
     Active Substance: LORMETAZEPAM
     Indication: PRODUCT USED FOR UNKNOWN INDICATION
     Dosage: 10 MG, TOTAL ; IN TOTAL
     Route: 048
     Dates: start: 20170905, end: 20170905
  2. ALCOHOL. [Interacting]
     Active Substance: ALCOHOL
     Indication: PRODUCT USED FOR UNKNOWN INDICATION
     Dosage: UNK () ; IN TOTAL
     Route: 048
     Dates: start: 20170905, end: 20170905
  3. LORAZEPAM 2.5MG FILM-COATED TABLETS [Interacting]
     Active Substance: LORAZEPAM
     Indication: PRODUCT USED FOR UNKNOWN INDICATION
     Dosage: 75 MG, TOTAL
     Route: 048
     Dates: start: 20170905, end: 20170905
  4. DEPAKIN [Concomitant]
     Active Substance: VALPROATE SODIUM
     Indication: ATTENTION DEFICIT/HYPERACTIVITY DISORDER
  5. RISPERDAL [Suspect]
     Active Substance: RISPERIDONE
     Indication: ATTENTION DEFICIT/HYPERACTIVITY DISORDER
     Dosage: 75 ML, TOTAL ; IN TOTAL
     Route: 048
     Dates: start: 20170905, end: 20170905
  6. RISPERDAL [Suspect]
     Active Substance: RISPERIDONE
     Indication: INTELLECTUAL DISABILITY
     Dosage: ()
  7. ZOLPIDEM [Suspect]
     Active Substance: ZOLPIDEM\ZOLPIDEM TARTRATE
     Indication: PRODUCT USED FOR UNKNOWN INDICATION
     Dosage: 2.5 MILLIGRAM IN TOTAL
     Route: 065
     Dates: start: 20170905, end: 20170905
  8. VENLAFAXINE [Suspect]
     Active Substance: VENLAFAXINE HYDROCHLORIDE
     Indication: PRODUCT USED FOR UNKNOWN INDICATION
     Dosage: 150 MG, TOTAL ; IN TOTAL
     Route: 048
     Dates: start: 20170905, end: 20170905
  9. TRIAZOLAM. [Suspect]
     Active Substance: TRIAZOLAM
     Indication: PRODUCT USED FOR UNKNOWN INDICATION
     Dosage: 2.5 MG, TOTAL ; IN TOTAL
     Route: 048
     Dates: start: 20170905, end: 20170905
  10. TRIAZOLAM. [Suspect]
     Active Substance: TRIAZOLAM
     Indication: INTENTIONAL SELF-INJURY
  11. LORMETAZEPAM [Suspect]
     Active Substance: LORMETAZEPAM
     Indication: INTENTIONAL SELF-INJURY
  12. VENLAFAXINE [Suspect]
     Active Substance: VENLAFAXINE HYDROCHLORIDE
     Indication: INTENTIONAL SELF-INJURY
  13. RISPERDAL [Suspect]
     Active Substance: RISPERIDONE
     Dosage: DOSAGE FORM: SOLUTION ()
  14. RISPERDAL [Suspect]
     Active Substance: RISPERIDONE
     Dosage: DOSAGE FORM: SOLUTION ()
     Route: 048
  15. DEPAKIN [Concomitant]
     Active Substance: VALPROATE SODIUM
     Indication: PRODUCT USED FOR UNKNOWN INDICATION
     Dosage: UNK
     Route: 048
  16. DEPAKIN [Concomitant]
     Active Substance: VALPROATE SODIUM
     Indication: INTELLECTUAL DISABILITY
     Dosage: ()
     Route: 048

REACTIONS (13)
  - Drug abuse [Unknown]
  - Alcohol interaction [Unknown]
  - Intentional product misuse [Unknown]
  - Attention deficit/hyperactivity disorder [Unknown]
  - Overdose [Unknown]
  - Sopor [Unknown]
  - Intentional self-injury [Unknown]
  - Intellectual disability [Unknown]
  - Contraindicated product administered [Unknown]
  - Aphasia [Unknown]
  - Concomitant disease aggravated [Unknown]
  - Loss of consciousness [Unknown]
  - Drug interaction [Unknown]

NARRATIVE: CASE EVENT DATE: 20170905
